FAERS Safety Report 4289234-7 (Version None)
Quarter: 2004Q1

REPORT INFORMATION
  Report Type: 
  Country: None (occurrence: None)
  Receive Date: 20040206
  Receipt Date: 20040130
  Transmission Date: 20041129
  Serious: Yes (Hospitalization)
  Sender: FDA-Public Use
  Company Number: US-JNJFOC-20040200521

PATIENT
  Sex: Male

DRUGS (1)
  1. ULTRACET [Suspect]
     Indication: PAIN
     Dosage: ORAL
     Route: 048

REACTIONS (3)
  - DIPLOPIA [None]
  - TREMOR [None]
  - URINARY RETENTION [None]
